FAERS Safety Report 11757180 (Version 1)
Quarter: 2015Q4

REPORT INFORMATION
  Report Type: Spontaneous
  Country: US (occurrence: None)
  Receive Date: 20151119
  Receipt Date: 20151119
  Transmission Date: 20160304
  Serious: No
  Sender: FDA-Public Use
  Company Number: None

PATIENT
  Age: 34 Year
  Sex: Male
  Weight: 118 kg

DRUGS (6)
  1. SOLU-MEDROL [Suspect]
     Active Substance: METHYLPREDNISOLONE SODIUM SUCCINATE
     Indication: MULTIPLE SCLEROSIS
     Dosage: DAILY FOR 3 DOSES
     Route: 042
     Dates: start: 20151118, end: 20151118
  2. MELATONIN [Concomitant]
     Active Substance: MELATONIN
  3. CLARITIN [Concomitant]
     Active Substance: LORATADINE
  4. ZONEGRAN [Concomitant]
     Active Substance: ZONISAMIDE
  5. IMITREX [Concomitant]
     Active Substance: SUMATRIPTAN\SUMATRIPTAN SUCCINATE
  6. LORAZEPAM. [Concomitant]
     Active Substance: LORAZEPAM

REACTIONS (5)
  - Chest discomfort [None]
  - Blood pressure increased [None]
  - Cough [None]
  - Dyspnoea [None]
  - Infusion related reaction [None]

NARRATIVE: CASE EVENT DATE: 20151118
